FAERS Safety Report 14868820 (Version 10)
Quarter: 2020Q3

REPORT INFORMATION
  Report Type: Spontaneous
  Country: US (occurrence: US)
  Receive Date: 20180509
  Receipt Date: 20200930
  Transmission Date: 20201102
  Serious: Yes (Other)
  Sender: FDA-Public Use
  Company Number: US-PFIZER INC-2017467030

PATIENT
  Age: 2 Year
  Sex: Male

DRUGS (12)
  1. GENOTROPIN MQ [Suspect]
     Active Substance: SOMATROPIN
     Indication: DEVELOPMENTAL HIP DYSPLASIA
     Dosage: 0.3 MG, 5 DAYS A WEEK
     Route: 058
     Dates: start: 20170429
  2. GENOTROPIN MQ [Suspect]
     Active Substance: SOMATROPIN
     Dosage: 0.4 MG, 3 DAYS A WEEK
  3. GENOTROPIN MQ [Suspect]
     Active Substance: SOMATROPIN
     Dosage: 0.4 MG, 5 DAYS PER WEEK
     Route: 058
  4. GENOTROPIN MQ [Suspect]
     Active Substance: SOMATROPIN
     Dosage: UNK
     Route: 058
  5. GENOTROPIN MQ [Suspect]
     Active Substance: SOMATROPIN
     Dosage: UNK
     Route: 058
     Dates: start: 20190408
  6. GENOTROPIN MQ [Suspect]
     Active Substance: SOMATROPIN
     Indication: PRADER-WILLI SYNDROME
     Dosage: 0.4 MG, ONCE A DAY FIVE DAYS A WEEK
     Route: 058
  7. GENOTROPIN MQ [Suspect]
     Active Substance: SOMATROPIN
     Dosage: 0.4 MG, 4 DAYS A WEEK (MONDAY,TUESDAY,WEDNESDAY AND THURSDAY)
     Dates: start: 20200117
  8. GENOTROPIN MQ [Suspect]
     Active Substance: SOMATROPIN
     Dosage: 1.2 MG, WEEKLY (0.4MG, 3 DAYS A WEEK? MONDAY, WEDNESDAY AND FRIDAY)
     Route: 058
     Dates: start: 201705
  9. GENOTROPIN MQ [Suspect]
     Active Substance: SOMATROPIN
     Indication: GROWTH HORMONE DEFICIENCY
     Dosage: 0.2 MG, DAILY
     Route: 058
     Dates: start: 201705
  10. GENOTROPIN MQ [Suspect]
     Active Substance: SOMATROPIN
     Dosage: UNK (0.6MG/ 0.6MG ON 3 DAYS A WEEK)
     Route: 058
  11. GENOTROPIN MQ [Suspect]
     Active Substance: SOMATROPIN
     Dosage: 0.4 MG, 5 DAYS PER WEEK
     Route: 058
     Dates: start: 201705, end: 201803
  12. GENOTROPIN MQ [Suspect]
     Active Substance: SOMATROPIN
     Dosage: 0.4 MG (0.4MG 4 DAYS A WEEK)
     Dates: start: 20170429

REACTIONS (7)
  - Sleep apnoea syndrome [Unknown]
  - Pyrexia [Unknown]
  - Product prescribing error [Unknown]
  - Product dose omission issue [Unknown]
  - Asthenia [Unknown]
  - Febrile convulsion [Unknown]
  - Increased appetite [Unknown]

NARRATIVE: CASE EVENT DATE: 201803
